FAERS Safety Report 6708161-6 (Version None)
Quarter: 2010Q2

REPORT INFORMATION
  Report Type: 
  Country: None (occurrence: None)
  Receive Date: 20100503
  Receipt Date: 20090716
  Transmission Date: 20101027
  Serious: No
  Sender: FDA-Public Use
  Company Number: US-ASTRAZENECA-2009UW20210

PATIENT
  Sex: Female

DRUGS (3)
  1. NEXIUM [Suspect]
     Indication: ULCER
     Dosage: 1 CAPSULE
     Route: 048
     Dates: start: 20090302, end: 20090615
  2. NEXIUM [Suspect]
     Dosage: 2 CAPSULE
     Route: 048
     Dates: start: 20090615
  3. ZOLOFT [Concomitant]
     Indication: DEPRESSION

REACTIONS (1)
  - GASTROINTESTINAL ULCER HAEMORRHAGE [None]
